FAERS Safety Report 7751818-9 (Version None)
Quarter: 2011Q3

REPORT INFORMATION
  Report Type: 
  Country: None (occurrence: None)
  Receive Date: 20110914
  Receipt Date: 20110914
  Transmission Date: 20111222
  Serious: Yes (Hospitalization)
  Sender: FDA-Public Use
  Company Number: None

PATIENT
  Sex: Male
  Weight: 57.1532 kg

DRUGS (1)
  1. PHENYTOIN SODIUM [Suspect]
     Indication: CONVULSION
     Dosage: 6 CAPS Q DAILY PO
     Route: 048
     Dates: start: 20090301, end: 20110801

REACTIONS (2)
  - DRUG LEVEL INCREASED [None]
  - DRUG LEVEL DECREASED [None]
